FAERS Safety Report 8386196-8 (Version None)
Quarter: 2012Q2

REPORT INFORMATION
  Report Type: 
  Country: None (occurrence: None)
  Receive Date: 20120523
  Receipt Date: 20120502
  Transmission Date: 20120825
  Serious: Yes (Life-Threatening, Other)
  Sender: FDA-Public Use
  Company Number: 2012P1028756

PATIENT
  Age: 61 Year
  Sex: Male

DRUGS (3)
  1. CEFTAZIDIME [Suspect]
     Indication: CHRONIC OBSTRUCTIVE PULMONARY DISEASE
     Dosage: 2 GM;QD;IM
     Route: 030
     Dates: start: 20120420, end: 20120420
  2. TIOTROPIUM [Concomitant]
  3. FLUTICASONE PROPIONATE/SALMETEROL [Concomitant]

REACTIONS (1)
  - PALATAL OEDEMA [None]
